FAERS Safety Report 21268046 (Version 1)
Quarter: 2022Q3

REPORT INFORMATION
  Report Type: Spontaneous
  Country: US (occurrence: US)
  Receive Date: 20220829
  Receipt Date: 20220829
  Transmission Date: 20221027
  Serious: No
  Sender: FDA-Public Use
  Company Number: US-009507513-2208USA002123

PATIENT
  Age: 3 Year
  Sex: Female

DRUGS (7)
  1. ZOLINZA [Suspect]
     Active Substance: VORINOSTAT
     Indication: Primitive neuroectodermal tumour
     Route: 048
  2. ISOTRETINOIN [Concomitant]
     Active Substance: ISOTRETINOIN
     Indication: Primitive neuroectodermal tumour
  3. VINCRISTINE [Concomitant]
     Active Substance: VINCRISTINE
     Indication: Primitive neuroectodermal tumour
  4. CISPLATIN [Concomitant]
     Active Substance: CISPLATIN
     Indication: Primitive neuroectodermal tumour
  5. ETOPOSIDE [Concomitant]
     Active Substance: ETOPOSIDE
     Indication: Primitive neuroectodermal tumour
  6. CYCLOPHOSPHAMIDE [Concomitant]
     Active Substance: CYCLOPHOSPHAMIDE
     Indication: Primitive neuroectodermal tumour
  7. TOPOTECAN [Concomitant]
     Active Substance: TOPOTECAN HYDROCHLORIDE
     Indication: Primitive neuroectodermal tumour
     Route: 037

REACTIONS (1)
  - Product use in unapproved indication [Unknown]
